FAERS Safety Report 24191271 (Version 1)
Quarter: 2024Q3

REPORT INFORMATION
  Report Type: Spontaneous
  Country: CN (occurrence: CN)
  Receive Date: 20240808
  Receipt Date: 20240808
  Transmission Date: 20241017
  Serious: Yes (Other)
  Sender: MERCK
  Company Number: CN-009507513-2407CHN015805

PATIENT
  Age: 62 Year
  Sex: Male

DRUGS (1)
  1. INVANZ [Suspect]
     Active Substance: ERTAPENEM SODIUM
     Indication: Urinary tract infection
     Dosage: UNK
     Route: 042
     Dates: start: 202406, end: 202407

REACTIONS (5)
  - Biliary obstruction [Unknown]
  - Suspected drug-induced liver injury [Unknown]
  - Myalgia [Not Recovered/Not Resolved]
  - Bone disorder [Not Recovered/Not Resolved]
  - Diarrhoea [Not Recovered/Not Resolved]

NARRATIVE: CASE EVENT DATE: 20240101
